FAERS Safety Report 20353353 (Version 3)
Quarter: 2022Q2

REPORT INFORMATION
  Report Type: Report from Study
  Country: US (occurrence: US)
  Receive Date: 20220119
  Receipt Date: 20220614
  Transmission Date: 20220720
  Serious: Yes (Hospitalization)
  Sender: FDA-Public Use
  Company Number: US-Taiho Oncology Inc-EU-2022-00101

PATIENT
  Age: 73 Year
  Sex: Female
  Weight: 52.7 kg

DRUGS (2)
  1. TIPIRACIL HYDROCHLORIDE\TRIFLURIDINE [Suspect]
     Active Substance: TIPIRACIL HYDROCHLORIDE\TRIFLURIDINE
     Indication: Gastrointestinal carcinoma
     Route: 048
     Dates: start: 20211230, end: 20220105
  2. IRINOTECAN [Suspect]
     Active Substance: IRINOTECAN
     Indication: Gastrointestinal carcinoma
     Route: 042
     Dates: start: 20211230, end: 20211230

REACTIONS (5)
  - Diarrhoea [Recovered/Resolved]
  - Nausea [Recovered/Resolved]
  - Asthenia [Recovered/Resolved]
  - Vomiting [Recovered/Resolved]
  - Dyspnoea [Recovered/Resolved]

NARRATIVE: CASE EVENT DATE: 20220110
